FAERS Safety Report 5061956-X (Version None)
Quarter: 2006Q3

REPORT INFORMATION
  Report Type: 
  Country: None (occurrence: None)
  Receive Date: 20060721
  Receipt Date: 20060712
  Transmission Date: 20061208
  Serious: Yes (Other)
  Sender: FDA-Public Use
  Company Number: 2006-07-0831

PATIENT
  Age: 55 Year
  Sex: Female

DRUGS (2)
  1. PEG-INTRON [Suspect]
     Dosage: 150 MCG QWK SUBCUTANEOUS
     Route: 058
     Dates: start: 20060601, end: 20060101
  2. REBETOL [Suspect]
     Dosage: 600 MG BID ORAL
     Route: 048
     Dates: start: 20060601, end: 20060101

REACTIONS (1)
  - CARDIAC DISORDER [None]
